FAERS Safety Report 11371538 (Version 1)
Quarter: 2015Q3

REPORT INFORMATION
  Report Type: Spontaneous
  Country: BR (occurrence: BR)
  Receive Date: 20150812
  Receipt Date: 20150812
  Transmission Date: 20151125
  Serious: Yes (Other)
  Sender: FDA-Public Use
  Company Number: ALCN2014BR001800

PATIENT
  Age: 8 Year
  Sex: Male
  Weight: 30 kg

DRUGS (1)
  1. NEVANAC [Suspect]
     Active Substance: NEPAFENAC
     Indication: CONJUNCTIVITIS
     Dosage: 1 GTT, Q8H
     Route: 047
     Dates: start: 20140222, end: 20140304

REACTIONS (7)
  - Visual acuity reduced [Unknown]
  - Ocular hyperaemia [Recovering/Resolving]
  - Drug ineffective for unapproved indication [Unknown]
  - Retinal injury [Unknown]
  - Eye discharge [Recovering/Resolving]
  - Eye injury [Unknown]
  - Hypersensitivity [Unknown]

NARRATIVE: CASE EVENT DATE: 20140222
